FAERS Safety Report 8261403-0 (Version None)
Quarter: 2012Q2

REPORT INFORMATION
  Report Type: 
  Country: None (occurrence: None)
  Receive Date: 20120402
  Receipt Date: 20120329
  Transmission Date: 20120825
  Serious: Yes (Hospitalization)
  Sender: FDA-Public Use
  Company Number: SP05547

PATIENT
  Age: 67 Year
  Sex: Female

DRUGS (2)
  1. VISICOL [Suspect]
     Indication: BOWEL PREPARATION
     Dosage: (50 DOSAGE FORMS),ORAL
     Route: 048
     Dates: start: 20120130, end: 20120131
  2. IRBESARTAN [Concomitant]

REACTIONS (7)
  - EATING DISORDER [None]
  - BLOOD PRESSURE INADEQUATELY CONTROLLED [None]
  - FEELING ABNORMAL [None]
  - OLIGURIA [None]
  - MALAISE [None]
  - BLOOD PRESSURE DECREASED [None]
  - RENAL FAILURE ACUTE [None]
